FAERS Safety Report 6415747-5 (Version None)
Quarter: 2009Q4

REPORT INFORMATION
  Report Type: 
  Country: None (occurrence: None)
  Receive Date: 20091022
  Receipt Date: 20091015
  Transmission Date: 20100525
  Serious: Yes (Hospitalization)
  Sender: FDA-Public Use
  Company Number: 220001J09ARG

PATIENT
  Age: 10 Year
  Sex: Male

DRUGS (1)
  1. SAIZEN [Suspect]
     Dosage: 1.2 MG, 1 IN 1 DAYS
     Dates: start: 20090301, end: 20090101

REACTIONS (3)
  - ABDOMINAL NEOPLASM [None]
  - DISCOMFORT [None]
  - NAUSEA [None]
